FAERS Safety Report 4943240-5 (Version None)
Quarter: 2006Q1

REPORT INFORMATION
  Report Type: 
  Country: None (occurrence: None)
  Receive Date: 20060314
  Receipt Date: 20051011
  Transmission Date: 20060701
  Serious: Yes (Other)
  Sender: FDA-Public Use
  Company Number: US-ROCHE-420964

PATIENT
  Age: 52 Year
  Sex: Male
  Weight: 95.3 kg

DRUGS (3)
  1. PEGASYS [Suspect]
     Dosage: ROUTE REPORTED AS INJECTION.
     Route: 050
     Dates: start: 20050708
  2. COPEGUS [Suspect]
     Route: 048
     Dates: start: 20050708
  3. ZOFRAN [Concomitant]
     Indication: NAUSEA
     Route: 048

REACTIONS (9)
  - CONFUSIONAL STATE [None]
  - CONSTIPATION [None]
  - DEPRESSION [None]
  - DISEASE RECURRENCE [None]
  - HEPATITIS [None]
  - HYPERAMMONAEMIA [None]
  - INJECTION SITE RASH [None]
  - PAIN [None]
  - WEIGHT DECREASED [None]
